FAERS Safety Report 9426319 (Version 1)
Quarter: 2013Q3

REPORT INFORMATION
  Report Type: Spontaneous
  Country: US (occurrence: None)
  Receive Date: 20130729
  Receipt Date: 20130729
  Transmission Date: 20140515
  Serious: No
  Sender: FDA-Public Use
  Company Number: None

PATIENT
  Age: 58 Year
  Sex: Female
  Weight: 47.63 kg

DRUGS (1)
  1. IBANDRONATE SULPHATE [Suspect]
     Indication: BONE LOSS
     Route: 048
     Dates: start: 20130720, end: 20130720

REACTIONS (1)
  - Abdominal pain upper [None]
